FAERS Safety Report 22041875 (Version 1)
Quarter: 2023Q1

REPORT INFORMATION
  Report Type: Report from Study
  Country: RO (occurrence: RO)
  Receive Date: 20230227
  Receipt Date: 20230227
  Transmission Date: 20230417
  Serious: Yes (Hospitalization)
  Sender: FDA-Public Use
  Company Number: RO-ROCHE-3135934

PATIENT
  Age: 46 Year
  Sex: Female

DRUGS (3)
  1. TRASTUZUMAB [Suspect]
     Active Substance: TRASTUZUMAB
     Indication: Breast cancer
     Dosage: 600 MILLIGRAM
     Route: 058
     Dates: start: 20220309
  2. DOCETAXEL [Suspect]
     Active Substance: DOCETAXEL
     Indication: Breast cancer
     Dosage: 75 MILLIGRAM/SQ. METER
     Route: 042
     Dates: start: 20220309
  3. PERTUZUMAB [Suspect]
     Active Substance: PERTUZUMAB
     Indication: Breast cancer
     Dosage: 840 MG LOADING DOSE, 420 MG IV/21 DAYS 4 CYCLES
     Route: 042
     Dates: start: 20220309

REACTIONS (2)
  - Hypersensitivity vasculitis [Unknown]
  - Malaise [Unknown]

NARRATIVE: CASE EVENT DATE: 20220314
